FAERS Safety Report 10375307 (Version 5)
Quarter: 2015Q1

REPORT INFORMATION
  Report Type: Spontaneous
  Country: GR (occurrence: GR)
  Receive Date: 20140811
  Receipt Date: 20150106
  Transmission Date: 20150720
  Serious: Yes (Death, Other)
  Sender: FDA-Public Use
  Company Number: GR-PFIZER INC-2014219920

PATIENT
  Age: 34 Year
  Sex: Female
  Weight: 53 kg

DRUGS (14)
  1. PREDNISOLONE. [Suspect]
     Active Substance: PREDNISOLONE
     Indication: HODGKIN^S DISEASE
     Dosage: 20 MG, CYCLIC, THREE TIMES DAILY FOR DAY 1-14
     Route: 048
  2. ENDOXAN [Suspect]
     Active Substance: CYCLOPHOSPHAMIDE
     Indication: HODGKIN^S DISEASE
     Dosage: 1950 MG, CYCLIC, DAY 1
     Route: 042
     Dates: start: 20140702, end: 20140704
  3. ZOFRON [Suspect]
     Active Substance: ONDANSETRON
     Indication: PROPHYLAXIS OF NAUSEA AND VOMITING
     Dosage: 8 MG, UNK
  4. TEVAGRASTIM [Suspect]
     Active Substance: FILGRASTIM
     Dosage: UNK
     Dates: start: 20140712, end: 20140712
  5. MESNA. [Suspect]
     Active Substance: MESNA
     Dosage: 800 MG BEFORE ENDOXAN AND 800 MG 4 HOURS AFTER ENDOXAN
     Dates: start: 20140702
  6. ZANTAC [Concomitant]
     Active Substance: RANITIDINE HYDROCHLORIDE
     Dosage: 150 MG, 2X/DAY
  7. ETOPOSIDE. [Suspect]
     Active Substance: ETOPOSIDE
     Indication: HODGKIN^S DISEASE
     Dosage: 300 MG (100 MG/5ML), CYCLIC, DAY 1-3
     Route: 042
     Dates: start: 20140702, end: 20140704
  8. NATULAN [Suspect]
     Active Substance: PROCARBAZINE HYDROCHLORIDE
     Indication: HODGKIN^S DISEASE
     Dosage: 250 MG, 3X/DAY, (OR 50 MG 3 TIMES DAILY, ACCORDING TO ANOTHER NOTE), DAY 1-7
     Route: 048
     Dates: start: 20140702
  9. ONDANSETRON [Suspect]
     Active Substance: ONDANSETRON
     Indication: PROPHYLAXIS OF NAUSEA AND VOMITING
     Dosage: 8 MG/4 ML
     Route: 042
     Dates: start: 20140702, end: 20140704
  10. TEVAGRASTIM [Suspect]
     Active Substance: FILGRASTIM
     Indication: WHITE BLOOD CELL COUNT DECREASED
     Dosage: UNK
     Dates: start: 20140710, end: 20140710
  11. ADRIBLASTINA [Suspect]
     Active Substance: DOXORUBICIN HYDROCHLORIDE
     Indication: HODGKIN^S DISEASE
     Dosage: 55 MG, CYCLIC, DAY 1
     Route: 042
     Dates: start: 20140702, end: 20140704
  12. EMEND [Suspect]
     Active Substance: APREPITANT
     Indication: PROPHYLAXIS OF NAUSEA AND VOMITING
     Dosage: 125-80-80 THE 3 FIRST DAY OF EACH CYCLE
     Route: 048
     Dates: start: 20140702
  13. ZYLORIC ^GLAXO WELLCOME^ [Concomitant]
     Dosage: 100 MG, 1X/DAY, CONTINUOUSLY
  14. CORTISONE [Suspect]
     Active Substance: CORTISONE\HYDROCORTISONE
     Indication: HODGKIN^S DISEASE
     Dosage: 12 DF, DAILY
     Dates: start: 20140702, end: 20140704

REACTIONS (8)
  - Diarrhoea [Unknown]
  - Myocardial ischaemia [Fatal]
  - Pyrexia [Recovered/Resolved]
  - Tachycardia [Recovered/Resolved]
  - Vomiting [Recovered/Resolved]
  - Neutropenia [Unknown]
  - Cardiac arrest [Fatal]
  - Aspiration [Fatal]

NARRATIVE: CASE EVENT DATE: 20140709
